FAERS Safety Report 8832965 (Version 1)
Quarter: 2012Q4

REPORT INFORMATION
  Report Type: 
  Country: US (occurrence: US)
  Receive Date: 20121010
  Receipt Date: 20121010
  Transmission Date: 20130627
  Serious: Yes (Other)
  Sender: FDA-Public Use
  Company Number: US-PFIZER INC-2012250551

PATIENT
  Age: 70 Year
  Sex: Female
  Weight: 44.44 kg

DRUGS (5)
  1. LYRICA [Suspect]
     Indication: NEURALGIA
     Dosage: 50 mg, Daily
     Route: 048
     Dates: start: 20120928, end: 20121003
  2. LYRICA [Suspect]
     Indication: HERPES ZOSTER
     Dosage: 100 mg, daily
     Route: 048
     Dates: start: 20121004, end: 20121005
  3. HYDROCODONE [Concomitant]
     Indication: PAIN
     Dosage: 10 mg, as needed
  4. ZOLPIDEM [Concomitant]
     Indication: INSOMNIA
     Dosage: 5 mg, as needed in night
  5. GABAPENTIN [Concomitant]
     Indication: HERPES ZOSTER
     Dosage: 300 mg one day and then at 600 mg for next two days, daily in night
     Dates: start: 201202, end: 20120927

REACTIONS (8)
  - Bedridden [Recovering/Resolving]
  - Euphoric mood [Recovering/Resolving]
  - Impaired driving ability [Recovering/Resolving]
  - Cold sweat [Recovering/Resolving]
  - Dizziness [Recovering/Resolving]
  - Feeling abnormal [Recovering/Resolving]
  - Hyperhidrosis [Recovering/Resolving]
  - Rash [Recovering/Resolving]
